FAERS Safety Report 22149637 (Version 1)
Quarter: 2023Q1

REPORT INFORMATION
  Report Type: Spontaneous
  Country: US (occurrence: US)
  Receive Date: 20230329
  Receipt Date: 20230329
  Transmission Date: 20230418
  Serious: Yes (Life-Threatening)
  Sender: FDA-Public Use
  Company Number: US-drreddys-LIT/USA/23/0162863

PATIENT
  Age: 39 Year
  Sex: Female

DRUGS (1)
  1. NEOSTIGMINE METHYLSULFATE [Suspect]
     Active Substance: NEOSTIGMINE METHYLSULFATE
     Indication: Neuromuscular blocking therapy

REACTIONS (3)
  - Ventricular tachyarrhythmia [Recovering/Resolving]
  - Cardiac arrest [Recovering/Resolving]
  - Exposure during pregnancy [Unknown]
